FAERS Safety Report 11284027 (Version 1)
Quarter: 2015Q3

REPORT INFORMATION
  Report Type: Report from Study
  Country: US (occurrence: US)
  Receive Date: 20150720
  Receipt Date: 20150720
  Transmission Date: 20151125
  Serious: Yes (Other)
  Sender: FDA-Public Use
  Company Number: US-BAYER-2015-376526

PATIENT
  Age: 60 Year
  Sex: Male

DRUGS (12)
  1. LYRICA [Concomitant]
     Active Substance: PREGABALIN
  2. FLOMAX (TAMSULOSIN) [Concomitant]
  3. FLONASE [Concomitant]
     Active Substance: FLUTICASONE PROPIONATE
  4. CYANOCOBALAMIN. [Concomitant]
     Active Substance: CYANOCOBALAMIN
  5. NASONEX [Concomitant]
     Active Substance: MOMETASONE FUROATE
  6. CIALIS [Concomitant]
     Active Substance: TADALAFIL
  7. MOBIC [Concomitant]
     Active Substance: MELOXICAM
  8. GLUCOSAMINE [Concomitant]
     Active Substance: GLUCOSAMINE
  9. MOVIPREP [Concomitant]
     Active Substance: ASCORBIC ACID\POLYETHYLENE GLYCOL 3350\POTASSIUM CHLORIDE\SODIUM ASCORBATE\SODIUM CHLORIDE\SODIUM SULFATE
  10. CHONDROITIN [Concomitant]
     Active Substance: CHONDROITIN
  11. STIVARGA [Suspect]
     Active Substance: REGORAFENIB
     Dosage: DOSE: 40 MG
     Dates: start: 20150701
  12. VENTOLIN HFA [Concomitant]
     Active Substance: ALBUTEROL SULFATE

REACTIONS (3)
  - Fatigue [Not Recovered/Not Resolved]
  - Arthralgia [Not Recovered/Not Resolved]
  - Arthritis [Not Recovered/Not Resolved]

NARRATIVE: CASE EVENT DATE: 201507
